FAERS Safety Report 4565596-8 (Version None)
Quarter: 2005Q1

REPORT INFORMATION
  Report Type: 
  Country: None (occurrence: None)
  Receive Date: 20050131
  Receipt Date: 20040913
  Transmission Date: 20050727
  Serious: Yes (Death)
  Sender: FDA-Public Use
  Company Number: CZ-NOVOPROD-239256

PATIENT
  Age: 71 Year
  Sex: Male
  Weight: 80 kg

DRUGS (12)
  1. NOVOSEVEN [Suspect]
     Indication: UPPER GASTROINTESTINAL HAEMORRHAGE
     Dosage: 600 UG/KG, UNK
     Route: 042
     Dates: start: 20040909, end: 20040910
  2. OMEPRAZOLE [Concomitant]
     Dosage: 80 MG, QD
     Route: 042
     Dates: start: 20040909
  3. CIPROFLOXACIN HCL [Concomitant]
     Dosage: 400 MG, QD
     Route: 042
     Dates: start: 20040909, end: 20040910
  4. CIPROFLOXACIN HCL [Concomitant]
     Dosage: 200 MG, QD
     Dates: start: 20040910, end: 20040913
  5. TERLIPRESSIN [Concomitant]
     Dosage: 6 MG, QD
     Route: 042
     Dates: start: 20040909
  6. LACTULOSE [Concomitant]
     Dosage: 60 ML, QD
     Route: 048
     Dates: start: 20040909, end: 20040911
  7. INSULIN HUMAN [Concomitant]
     Dosage: UNK IU, QD
     Route: 042
     Dates: start: 20040909
  8. FUROSEMIDE [Concomitant]
     Dosage: 40 MG, QD
     Route: 042
     Dates: start: 20040909, end: 20040909
  9. REMESTYP [Concomitant]
     Dosage: 2 MG, QD
     Dates: start: 20040909, end: 20040909
  10. REMESTYP [Concomitant]
     Dosage: 1 MG, QD
     Dates: start: 20040910, end: 20040913
  11. DIFLUCAN [Concomitant]
     Dosage: 200 MG, QD
     Dates: start: 20040912, end: 20040912
  12. NORADRENALINE [Concomitant]
     Dosage: .34 UG/KG, QD
     Dates: start: 20040911, end: 20040913

REACTIONS (4)
  - ACUTE MYOCARDIAL INFARCTION [None]
  - CARDIOGENIC SHOCK [None]
  - CARDIOPULMONARY FAILURE [None]
  - VENTRICULAR FIBRILLATION [None]
